FAERS Safety Report 10775405 (Version 2)
Quarter: 2015Q1

REPORT INFORMATION
  Report Type: Spontaneous
  Country: JP (occurrence: None)
  Receive Date: 20150205
  Receipt Date: 20150218
  Transmission Date: 20150721
  Serious: Yes (Life-Threatening)
  Sender: FDA-Public Use
  Company Number: SP08942

PATIENT
  Age: 40 Year
  Sex: Male
  Weight: 81.95 kg

DRUGS (10)
  1. PROTECADIN [Concomitant]
     Active Substance: LAFUTIDINE
  2. BIOFERMIN [Concomitant]
     Active Substance: BACILLUS SUBTILIS\LACTOBACILLUS ACIDOPHILUS\STREPTOCOCCUS FAECAIS
  3. ALFAROL [Concomitant]
     Active Substance: ALFACALCIDOL
  4. ARTIST [Concomitant]
     Active Substance: CARVEDILOL
  5. OLMETEC [Concomitant]
     Active Substance: OLMESARTAN MEDOXOMIL
  6. MOVIPREP [Suspect]
     Active Substance: ASCORBIC ACID\POLYETHYLENE GLYCOL 3350\POTASSIUM CHLORIDE\SODIUM ASCORBATE\SODIUM CHLORIDE\SODIUM SULFATE
     Indication: BOWEL PREPARATION
     Route: 048
     Dates: start: 20150115, end: 20150115
  7. LYRICA [Concomitant]
     Active Substance: PREGABALIN
  8. GASMOTIN [Concomitant]
     Active Substance: MOSAPRIDE CITRATE
  9. CALCIUM CARBONATE. [Concomitant]
     Active Substance: CALCIUM CARBONATE
  10. FOSRENAL [Concomitant]

REACTIONS (4)
  - Dehydration [None]
  - Hyperkalaemia [None]
  - Weight decreased [None]
  - Cold sweat [None]

NARRATIVE: CASE EVENT DATE: 20150115
